FAERS Safety Report 9306272 (Version 1)
Quarter: 2013Q2

REPORT INFORMATION
  Report Type: Report from Study
  Country: US (occurrence: US)
  Receive Date: 20130523
  Receipt Date: 20130523
  Transmission Date: 20140414
  Serious: Yes (Hospitalization)
  Sender: FDA-Public Use
  Company Number: US-ABBOTT-13P-163-1091146-00

PATIENT
  Age: 68 Year
  Sex: Female

DRUGS (6)
  1. HUMIRA [Suspect]
     Indication: RHEUMATOID ARTHRITIS
     Route: 058
  2. PREDNISONE [Concomitant]
     Indication: RHEUMATOID ARTHRITIS
  3. LEVOTHYROXINE [Concomitant]
     Indication: HYPOTHYROIDISM
  4. OSTEO BI FLEX [Concomitant]
     Indication: VITAMIN SUPPLEMENTATION
  5. DILTIAZEM [Concomitant]
     Indication: HYPERTENSION
  6. POTASSIUM [Concomitant]
     Indication: HYPERTENSION

REACTIONS (6)
  - Procedural complication [Not Recovered/Not Resolved]
  - Hypertension [Unknown]
  - Influenza like illness [Unknown]
  - Pain [Unknown]
  - Arthralgia [Unknown]
  - Headache [Unknown]
